FAERS Safety Report 18224457 (Version 1)
Quarter: 2020Q3

REPORT INFORMATION
  Report Type: Spontaneous
  Country: US (occurrence: US)
  Receive Date: 20200902
  Receipt Date: 20200902
  Transmission Date: 20201103
  Serious: No
  Sender: FDA-Public Use
  Company Number: US-PURDUE-USA-2019-0148966

PATIENT
  Sex: Male

DRUGS (3)
  1. OXYCODONE/ ACETAMINOPHEN TABLETS [Suspect]
     Active Substance: ACETAMINOPHEN\OXYCODONE HYDROCHLORIDE
     Indication: PAIN
     Dosage: UNK (5/325 MG) TABLET, UNK
     Route: 048
     Dates: start: 2000
  2. OXYCODONE/ ACETAMINOPHEN TABLETS [Suspect]
     Active Substance: ACETAMINOPHEN\OXYCODONE HYDROCHLORIDE
     Indication: CHOLECYSTECTOMY
     Dosage: UNK (10/325 MG) TABLET, UNK
     Route: 048
     Dates: start: 2000, end: 2013
  3. OXYCODONE/ ACETAMINOPHEN TABLETS [Suspect]
     Active Substance: ACETAMINOPHEN\OXYCODONE HYDROCHLORIDE
     Dosage: UNK (5/325 MG) TABLET, UNK
     Route: 048
     Dates: start: 2015, end: 2015

REACTIONS (5)
  - Memory impairment [Unknown]
  - Anger [Unknown]
  - Sleep disorder [Unknown]
  - Depression [Unknown]
  - Unevaluable event [Unknown]
